FAERS Safety Report 4875012-4 (Version None)
Quarter: 2006Q1

REPORT INFORMATION
  Report Type: 
  Country: None (occurrence: None)
  Receive Date: 20060105
  Receipt Date: 20051227
  Transmission Date: 20060701
  Serious: Yes (Hospitalization)
  Sender: FDA-Public Use
  Company Number: 13142

PATIENT
  Age: 64 Year
  Sex: Male
  Weight: 77.5 kg

DRUGS (40)
  1. CYTARABINE [Suspect]
     Indication: ACUTE MYELOID LEUKAEMIA
  2. ETOPOSIDE [Suspect]
     Indication: ACUTE MYELOID LEUKAEMIA
  3. MITOXANTRONE [Suspect]
     Indication: ACUTE MYELOID LEUKAEMIA
  4. CEP-701 [Suspect]
     Indication: ACUTE MYELOID LEUKAEMIA
     Dosage: 80 MG BID PO
     Route: 048
     Dates: start: 20050930
  5. LOTENSIN [Concomitant]
  6. LOVASTATIN [Concomitant]
  7. TIMOLOL MALEATE [Concomitant]
  8. TRAVOPROST [Concomitant]
  9. FOLATE [Concomitant]
  10. ATENOLOL [Concomitant]
  11. AMBIEN [Concomitant]
  12. TYLENOL  /00020001/ [Concomitant]
  13. BENADRYL                   /00000402/ [Concomitant]
  14. ALLOPURINOL [Concomitant]
  15. SODIUM BICARBONATE [Concomitant]
  16. DIPHENHYDRAMINE [Concomitant]
  17. PROMETHAZINE [Concomitant]
  18. LISINOPRIL [Concomitant]
  19. ACYCLOVIR [Concomitant]
  20. FLUCONAZOLE [Concomitant]
  21. HEPARIN [Concomitant]
  22. DEXAMETHASONE TAB [Concomitant]
  23. LORAZEPAM [Concomitant]
  24. ONDANSETRON [Concomitant]
  25. PRIMAXIN      /000788801/ [Concomitant]
  26. VANCOMYCIN [Concomitant]
  27. WITCH HAZEL [Concomitant]
  28. ANUSOL                   /00117301/ [Concomitant]
  29. LOPERAMIDE HYDROCHLORIDE [Concomitant]
  30. CASPOFUNGIN [Concomitant]
  31. SODIUM CHLORIDE NASAL SPRAY [Concomitant]
  32. PANTOPRAZOLE [Concomitant]
  33. PREPARATION H   /00611001/ [Concomitant]
  34. VITAMIN SUPPLEMENTS [Concomitant]
  35. HALOPERIDO LACTATE [Concomitant]
  36. HYDROCORTISONE [Concomitant]
  37. DAPTOMYCIN [Concomitant]
  38. FILGRASTIM [Concomitant]
  39. LINEZOLID [Concomitant]
  40. CALCIUM CARBONATE [Concomitant]

REACTIONS (10)
  - CENTRAL LINE INFECTION [None]
  - CHILLS [None]
  - ENTEROBACTER INFECTION [None]
  - FATIGUE [None]
  - FEBRILE NEUTROPENIA [None]
  - HAEMATOCRIT DECREASED [None]
  - HAEMOGLOBIN DECREASED [None]
  - KLEBSIELLA INFECTION [None]
  - LABORATORY TEST ABNORMAL [None]
  - WHITE BLOOD CELL COUNT DECREASED [None]
